FAERS Safety Report 5241055-4 (Version None)
Quarter: 2007Q1

REPORT INFORMATION
  Report Type: 
  Country: None (occurrence: None)
  Receive Date: 20070213
  Receipt Date: 20070213
  Transmission Date: 20070707
  Serious: Yes (Other)
  Sender: FDA-Public Use
  Company Number: None

PATIENT
  Age: 43 Year
  Sex: Male
  Weight: 84.369 kg

DRUGS (1)
  1. CLONAZEPAM [Suspect]
     Indication: MENTAL DISORDER
     Dosage: 1 MG ONCE DAILY
     Dates: start: 20061221, end: 20070122

REACTIONS (4)
  - ANXIETY [None]
  - DEPRESSION [None]
  - PHARMACEUTICAL PRODUCT COMPLAINT [None]
  - POOR QUALITY DRUG ADMINISTERED [None]
